FAERS Safety Report 20471050 (Version 1)
Quarter: 2022Q1

REPORT INFORMATION
  Report Type: Spontaneous
  Country: US (occurrence: US)
  Receive Date: 20220214
  Receipt Date: 20220214
  Transmission Date: 20220423
  Serious: No
  Sender: FDA-Public Use
  Company Number: US-BAYER-2022A018085

PATIENT
  Age: 81 Year
  Sex: Female
  Weight: 71.21 kg

DRUGS (1)
  1. MIRALAX [Suspect]
     Active Substance: POLYETHYLENE GLYCOL 3350

REACTIONS (5)
  - Decreased appetite [Unknown]
  - Micturition frequency decreased [Unknown]
  - Blood pressure abnormal [Unknown]
  - Weight decreased [Not Recovered/Not Resolved]
  - White blood cell count increased [None]

NARRATIVE: CASE EVENT DATE: 20200124
